FAERS Safety Report 18590871 (Version 3)
Quarter: 2021Q1

REPORT INFORMATION
  Report Type: Spontaneous
  Country: US (occurrence: US)
  Receive Date: 20201208
  Receipt Date: 20210308
  Transmission Date: 20210419
  Serious: No
  Sender: FDA-Public Use
  Company Number: US-PFIZER INC-2020482139

PATIENT
  Age: 58 Year
  Sex: Female

DRUGS (2)
  1. XELJANZ XR [Suspect]
     Active Substance: TOFACITINIB CITRATE
     Dosage: 11 MG, DAILY
     Route: 048
     Dates: start: 20201201
  2. XELJANZ XR [Suspect]
     Active Substance: TOFACITINIB CITRATE
     Indication: RHEUMATOID ARTHRITIS
     Dosage: 11 MG, 1X/DAY
     Route: 048
     Dates: start: 20201130

REACTIONS (7)
  - Condition aggravated [Unknown]
  - Drug hypersensitivity [Unknown]
  - Throat irritation [Unknown]
  - Therapeutic response unexpected [Unknown]
  - Oropharyngeal pain [Unknown]
  - Pyrexia [Unknown]
  - Inflammation [Unknown]

NARRATIVE: CASE EVENT DATE: 2020
